FAERS Safety Report 8092891-0 (Version None)
Quarter: 2012Q1

REPORT INFORMATION
  Report Type: 
  Country: None (occurrence: None)
  Receive Date: 20120128
  Receipt Date: 20110726
  Transmission Date: 20120608
  Serious: No
  Sender: FDA-Public Use
  Company Number: US-ABBOTT-11P-163-0841888-00

PATIENT
  Age: 39 Year
  Sex: Female

DRUGS (3)
  1. NORCO [Concomitant]
     Indication: PAIN
     Dosage: AS NEEDED
  2. PREDNISONE TAB [Concomitant]
     Indication: PRODUCT USED FOR UNKNOWN INDICATION
  3. HUMIRA [Suspect]
     Indication: CROHN'S DISEASE
     Dates: start: 20110714

REACTIONS (1)
  - INJECTION SITE PAIN [None]
